FAERS Safety Report 4758810-7 (Version None)
Quarter: 2005Q3

REPORT INFORMATION
  Report Type: 
  Country: None (occurrence: None)
  Receive Date: 20050901
  Receipt Date: 20050824
  Transmission Date: 20060218
  Serious: Yes (Death)
  Sender: FDA-Public Use
  Company Number: FR-BRISTOL-MYERS SQUIBB COMPANY-13090105

PATIENT
  Age: 54 Year
  Sex: Female

DRUGS (6)
  1. HYDREA [Suspect]
     Indication: CHRONIC MYELOID LEUKAEMIA
     Route: 048
     Dates: start: 20030507, end: 20030611
  2. GLEEVEC [Suspect]
     Indication: CHRONIC MYELOID LEUKAEMIA
     Dates: start: 20030611
  3. GLUCOR [Concomitant]
  4. GLUCOPHAGE [Concomitant]
  5. GLYBURIDE [Concomitant]
  6. ALLOPURINOL [Concomitant]
     Dates: start: 20030324

REACTIONS (2)
  - NON-HODGKIN'S LYMPHOMA [None]
  - TREATMENT RELATED SECONDARY MALIGNANCY [None]
